FAERS Safety Report 9828402 (Version 1)
Quarter: 2014Q1

REPORT INFORMATION
  Report Type: Spontaneous
  Country: HN (occurrence: HN)
  Receive Date: 20140117
  Receipt Date: 20140117
  Transmission Date: 20141002
  Serious: Yes (Death)
  Sender: FDA-Public Use
  Company Number: HN-PFIZER INC-2014014427

PATIENT
  Sex: Male

DRUGS (1)
  1. ALTRULINE [Suspect]
     Dosage: UNK

REACTIONS (1)
  - Death [Fatal]
